FAERS Safety Report 6241946-1 (Version None)
Quarter: 2009Q2

REPORT INFORMATION
  Report Type: 
  Country: None (occurrence: None)
  Receive Date: 20090623
  Receipt Date: 20090617
  Transmission Date: 20091009
  Serious: Yes (Hospitalization)
  Sender: FDA-Public Use
  Company Number: FR-MERCK-0906FRA00072

PATIENT
  Age: 61 Year
  Sex: Female

DRUGS (12)
  1. ISENTRESS [Suspect]
     Indication: HIV INFECTION
     Route: 048
     Dates: start: 20081119
  2. ABACAVIR SULFATE AND LAMIVUDINE [Concomitant]
     Indication: HIV INFECTION
     Route: 048
     Dates: start: 20080801
  3. REPAGLINIDE [Concomitant]
     Indication: DIABETES MELLITUS
     Route: 065
  4. METFORMIN HYDROCHLORIDE [Concomitant]
     Indication: DIABETES MELLITUS
     Route: 048
  5. INSULIN GLARGINE [Concomitant]
     Route: 058
  6. FENOFIBRATE [Concomitant]
     Indication: DYSLIPIDAEMIA
     Route: 048
  7. LEVOCARNITINE [Concomitant]
     Route: 048
  8. LEVOTHYROXINE SODIUM [Concomitant]
     Indication: HYPOTHYROIDISM
     Route: 048
  9. MAGNESIUM (UNSPECIFIED) [Concomitant]
     Route: 048
  10. PROGESTERONE [Concomitant]
     Route: 065
  11. ESTRADIOL [Concomitant]
     Route: 065
  12. ASPIRIN LYSINE [Concomitant]
     Route: 048

REACTIONS (1)
  - DIABETES MELLITUS INADEQUATE CONTROL [None]
